FAERS Safety Report 5817505-9 (Version None)
Quarter: 2008Q3

REPORT INFORMATION
  Report Type: 
  Country: None (occurrence: None)
  Receive Date: 20080722
  Receipt Date: 20080716
  Transmission Date: 20090109
  Serious: Yes (Death)
  Sender: FDA-Public Use
  Company Number: HR-JNJFOC-20080704253

PATIENT
  Sex: Female

DRUGS (8)
  1. DURAGESIC-100 [Suspect]
     Indication: LUNG NEOPLASM MALIGNANT
  2. DIPYRONE INJ [Concomitant]
  3. TEOTARD [Concomitant]
  4. LANITOP [Concomitant]
  5. ISOPTIN [Concomitant]
  6. MEDROL [Concomitant]
  7. SERETIDE [Concomitant]
  8. CONTROLOC [Concomitant]

REACTIONS (1)
  - LUNG NEOPLASM MALIGNANT [None]
